FAERS Safety Report 16909302 (Version 1)
Quarter: 2019Q4

REPORT INFORMATION
  Report Type: Spontaneous
  Country: US (occurrence: US)
  Receive Date: 20190820
  Receipt Date: 20190820
  Transmission Date: 20200122
  Serious: Yes (Other)
  Sender: FDA-Public Use
  Company Number: None

PATIENT
  Age: 88 Year
  Sex: Male

DRUGS (6)
  1. AMLODIPINE 2.5MG [Suspect]
     Active Substance: AMLODIPINE BESYLATE
     Indication: RAYNAUD^S PHENOMENON
     Dosage: ?          QUANTITY:1 DF DOSAGE FORM;?
     Route: 048
     Dates: start: 20190704, end: 20190707
  2. COUMADINE [Concomitant]
     Active Substance: WARFARIN SODIUM
  3. VITAMIN E [Concomitant]
     Active Substance: .ALPHA.-TOCOPHEROL
  4. COD LIVER OIL [Concomitant]
     Active Substance: COD LIVER OIL
  5. GINKO BILOBA [Concomitant]
     Active Substance: GINKGO
  6. SAW PALMETTO [Concomitant]
     Active Substance: HERBALS\SAW PALMETTO

REACTIONS (3)
  - Muscle disorder [None]
  - Swelling face [None]
  - Movement disorder [None]

NARRATIVE: CASE EVENT DATE: 20190704
